FAERS Safety Report 10528971 (Version 1)
Quarter: 2014Q4

REPORT INFORMATION
  Report Type: Spontaneous
  Country: US (occurrence: US)
  Receive Date: 20141020
  Receipt Date: 20141020
  Transmission Date: 20150528
  Serious: Yes (Other)
  Sender: FDA-Public Use
  Company Number: US-OTSUKA-US-2014-13208

PATIENT

DRUGS (1)
  1. SAMSCA [Suspect]
     Active Substance: TOLVAPTAN
     Indication: HYPONATRAEMIA
     Dosage: 15 MG MILLIGRAM(S), ONCE
     Route: 048
     Dates: start: 201410, end: 201410

REACTIONS (5)
  - Osmotic demyelination syndrome [Unknown]
  - Hypernatraemia [Recovered/Resolved]
  - Rapid correction of hyponatraemia [Unknown]
  - Parkinsonism [Recovering/Resolving]
  - Diabetes insipidus [Unknown]

NARRATIVE: CASE EVENT DATE: 201410
